FAERS Safety Report 4706335-7 (Version None)
Quarter: 2005Q3

REPORT INFORMATION
  Report Type: 
  Country: None (occurrence: None)
  Receive Date: 20050705
  Receipt Date: 20050616
  Transmission Date: 20060218
  Serious: Yes (Death, Hospitalization)
  Sender: FDA-Public Use
  Company Number: FR-BRISTOL-MYERS SQUIBB COMPANY-13011176

PATIENT
  Sex: Male

DRUGS (1)
  1. GLUCOPHAGE [Suspect]
     Indication: DIABETES MELLITUS NON-INSULIN-DEPENDENT

REACTIONS (7)
  - EMPHYSEMA [None]
  - HEPATIC CIRRHOSIS [None]
  - LACTIC ACIDOSIS [None]
  - LUNG INFECTION [None]
  - MULTI-ORGAN FAILURE [None]
  - RENAL FAILURE [None]
  - STAPHYLOCOCCAL SEPSIS [None]
